FAERS Safety Report 13014943 (Version 3)
Quarter: 2017Q1

REPORT INFORMATION
  Report Type: Report from Study
  Country: US (occurrence: US)
  Receive Date: 20161210
  Receipt Date: 20170120
  Transmission Date: 20170428
  Serious: Yes (Hospitalization, Other)
  Sender: FDA-Public Use
  Company Number: US-JAZZ-2016-US-021295

PATIENT
  Age: 49 Year
  Sex: Female

DRUGS (17)
  1. XYREM [Suspect]
     Active Substance: SODIUM OXYBATE
     Indication: NARCOLEPSY
     Dosage: 2.5 G, BID
     Route: 048
     Dates: start: 201608, end: 201608
  2. TRAZODONE [Concomitant]
     Active Substance: TRAZODONE HYDROCHLORIDE
  3. AMITRIPTYLINE HCL [Concomitant]
     Active Substance: AMITRIPTYLINE
  4. KLOR-CON [Concomitant]
     Active Substance: POTASSIUM CHLORIDE
  5. LEVOTHYROXINE. [Concomitant]
     Active Substance: LEVOTHYROXINE
  6. CYANOCOBALAMIN. [Concomitant]
     Active Substance: CYANOCOBALAMIN
  7. XYREM [Suspect]
     Active Substance: SODIUM OXYBATE
     Dosage: DOSE ADJUSTMENTS
     Route: 048
     Dates: start: 201608, end: 201609
  8. GABAPENTIN. [Concomitant]
     Active Substance: GABAPENTIN
  9. LORATADINE. [Concomitant]
     Active Substance: LORATADINE
  10. VITAMIN D3 [Concomitant]
     Active Substance: CHOLECALCIFEROL
  11. XYREM [Suspect]
     Active Substance: SODIUM OXYBATE
     Dosage: 4.5 G, BID
     Route: 048
     Dates: start: 201609
  12. NUVIGIL [Concomitant]
     Active Substance: ARMODAFINIL
  13. ALPRAZOLAM. [Concomitant]
     Active Substance: ALPRAZOLAM
  14. FUROSEMIDE. [Concomitant]
     Active Substance: FUROSEMIDE
  15. VENLAFAXINE HCL [Concomitant]
     Active Substance: VENLAFAXINE HYDROCHLORIDE
  16. MELOXICAM. [Concomitant]
     Active Substance: MELOXICAM
  17. LYRICA [Concomitant]
     Active Substance: PREGABALIN

REACTIONS (13)
  - Palpitations [Recovering/Resolving]
  - Pain [Not Recovered/Not Resolved]
  - Cellulitis [Unknown]
  - Moaning [Unknown]
  - Enuresis [Unknown]
  - Restless legs syndrome [Not Recovered/Not Resolved]
  - Muscle twitching [Unknown]
  - Thrombosis [Unknown]
  - Bladder disorder [Unknown]
  - Phlebitis [Unknown]
  - Dyskinesia [Unknown]
  - Sleep talking [Unknown]
  - Fall [Recovered/Resolved]

NARRATIVE: CASE EVENT DATE: 2016
